FAERS Safety Report 6549153-X (Version None)
Quarter: 2010Q1

REPORT INFORMATION
  Report Type: 
  Country: None (occurrence: None)
  Receive Date: 20100125
  Receipt Date: 20100114
  Transmission Date: 20100710
  Serious: Yes (Death, Other)
  Sender: FDA-Public Use
  Company Number: JP-WYE-H12051509

PATIENT
  Sex: Male
  Weight: 50 kg

DRUGS (14)
  1. ZOSYN [Suspect]
     Indication: PNEUMONIA ASPIRATION
     Route: 042
     Dates: start: 20091010, end: 20091015
  2. ZOSYN [Suspect]
     Indication: URINARY TRACT INFECTION
     Route: 042
     Dates: start: 20091015, end: 20091016
  3. BENZALIN [Concomitant]
     Indication: INSOMNIA
     Dosage: 5 MG DAILY
     Route: 048
     Dates: start: 20090925, end: 20091022
  4. FERROMIA [Concomitant]
     Indication: ANAEMIA
     Dosage: 200 MG DAILY
     Route: 048
     Dates: start: 20091003, end: 20091022
  5. LASIX [Concomitant]
     Indication: HYDRONEPHROSIS
     Dosage: 20 MG DAILY
     Route: 048
     Dates: start: 20091006, end: 20091022
  6. LASIX [Concomitant]
     Indication: URINARY TRACT INFECTION
  7. VANCOMYCIN [Suspect]
     Indication: UROSEPSIS
     Route: 041
     Dates: start: 20091023, end: 20091103
  8. VANCOMYCIN [Suspect]
     Indication: STAPHYLOCOCCAL SEPSIS
  9. TRANSAMIN [Concomitant]
     Indication: HAEMATURIA
     Dosage: 1G DAILY
     Route: 041
     Dates: start: 20091003, end: 20091010
  10. ADONAMIN-C [Concomitant]
     Indication: HAEMATURIA
     Dosage: 200 MG DAILY
     Route: 041
     Dates: start: 20091003, end: 20091010
  11. REPTILASE [Concomitant]
     Indication: HAEMATURIA
     Dosage: 2 LU DAILY
     Route: 041
     Dates: start: 20091003, end: 20091010
  12. PHYSISALZ [Concomitant]
     Dosage: UNKNOWN
     Route: 041
  13. LACTEC [Concomitant]
     Indication: HAEMATURIA
     Dosage: UNKNOWN
  14. ARICEPT [Concomitant]
     Indication: DEMENTIA
     Dosage: 3-10 MG DAILY
     Route: 048
     Dates: start: 20090926, end: 20091022

REACTIONS (5)
  - ANAEMIA [None]
  - BONE MARROW FAILURE [None]
  - PLATELET COUNT DECREASED [None]
  - PLEURAL EFFUSION [None]
  - RESPIRATORY FAILURE [None]
